FAERS Safety Report 8818151 (Version 1)
Quarter: 2012Q4

REPORT INFORMATION
  Report Type: 
  Country: US (occurrence: US)
  Receive Date: 20121002
  Receipt Date: 20121002
  Transmission Date: 20130627
  Serious: No
  Sender: FDA-Public Use
  Company Number: US-009507513-1208USA007970

PATIENT
  Sex: Female

DRUGS (3)
  1. VICTRELIS [Suspect]
     Indication: HEPATITIS C
     Dosage: UNK
     Dates: end: 20120815
  2. INTERFERON (UNSPECIFIED) [Concomitant]
  3. RIBAVIRIN [Concomitant]

REACTIONS (1)
  - Viral load increased [Not Recovered/Not Resolved]
